FAERS Safety Report 6472828-8 (Version None)
Quarter: 2009Q4

REPORT INFORMATION
  Report Type: 
  Country: None (occurrence: None)
  Receive Date: 20091203
  Receipt Date: 20090814
  Transmission Date: 20100525
  Serious: No
  Sender: FDA-Public Use
  Company Number: US-AMGEN-KDL324402

PATIENT
  Sex: Female
  Weight: 79.5 kg

DRUGS (2)
  1. ENBREL [Suspect]
     Indication: RHEUMATOID ARTHRITIS
     Route: 058
  2. UNSPECIFIED MEDICATION [Concomitant]

REACTIONS (5)
  - ANXIETY [None]
  - BLOOD THYROID STIMULATING HORMONE INCREASED [None]
  - DRY EYE [None]
  - POST-TRAUMATIC STRESS DISORDER [None]
  - STRESS [None]
